FAERS Safety Report 9716811 (Version 1)
Quarter: 2013Q4

REPORT INFORMATION
  Report Type: Spontaneous
  Country: US (occurrence: US)
  Receive Date: 20131127
  Receipt Date: 20131127
  Transmission Date: 20140711
  Serious: No
  Sender: FDA-Public Use
  Company Number: US-009507513-1311USA011685

PATIENT
  Age: 43 Year
  Sex: Female

DRUGS (4)
  1. PROVENTIL [Suspect]
     Indication: ASTHMA
     Dosage: UNK
     Route: 055
  2. COGENTIN [Concomitant]
  3. SEROQUEL [Concomitant]
  4. ZOLOFT [Concomitant]

REACTIONS (3)
  - Asthma [Unknown]
  - Drug dose omission [Unknown]
  - Product quality issue [Unknown]
